FAERS Safety Report 6170708-9 (Version None)
Quarter: 2009Q2

REPORT INFORMATION
  Report Type: 
  Country: None (occurrence: None)
  Receive Date: 20090428
  Receipt Date: 20090413
  Transmission Date: 20091009
  Serious: Yes (Death, Other)
  Sender: FDA-Public Use
  Company Number: FR-GENENTECH-281712

PATIENT

DRUGS (3)
  1. RITUXIMAB [Suspect]
     Indication: B-CELL LYMPHOMA
     Route: 065
  2. DOXORUBICIN HCL [Suspect]
     Indication: B-CELL LYMPHOMA
     Dosage: UNK
     Route: 065
  3. CYCLOPHOSPHAMIDE [Suspect]
     Indication: B-CELL LYMPHOMA
     Route: 065

REACTIONS (7)
  - CARDIAC FAILURE [None]
  - DEATH [None]
  - NEUTROPENIA [None]
  - NEUTROPENIC SEPSIS [None]
  - PNEUMONIA [None]
  - THROMBOCYTOPENIA [None]
  - VENOUS THROMBOSIS [None]
